FAERS Safety Report 14807237 (Version 3)
Quarter: 2018Q2

REPORT INFORMATION
  Report Type: Spontaneous
  Country: DE (occurrence: DE)
  Receive Date: 20180425
  Receipt Date: 20180522
  Transmission Date: 20180711
  Serious: Yes (Hospitalization, Other)
  Sender: FDA-Public Use
  Company Number: DE-PFIZER INC-2018165919

PATIENT
  Age: 41 Year
  Sex: Male
  Weight: 80 kg

DRUGS (10)
  1. VITAMIN B [Suspect]
     Active Substance: VITAMIN B
     Dosage: UNK UNK, QD
     Route: 048
  2. ALLOPURINOL. [Suspect]
     Active Substance: ALLOPURINOL
     Dosage: 100 MG, QD
     Route: 048
  3. PANTOPRAZOLE [Suspect]
     Active Substance: PANTOPRAZOLE
     Dosage: 20 MG, QD
     Route: 048
  4. HYDROCORTISONE. [Suspect]
     Active Substance: HYDROCORTISONE
     Dosage: 10 MG, BID
     Route: 048
  5. LEVOTHYROXIN [Suspect]
     Active Substance: LEVOTHYROXINE
     Dosage: 75 MG, QD
     Route: 048
  6. LEVETIRACETAM. [Suspect]
     Active Substance: LEVETIRACETAM
     Dosage: 1000 MG, TID
     Route: 048
  7. DESMOPRESSIN [Suspect]
     Active Substance: DESMOPRESSIN
     Dosage: 0.1 MG, UNK
     Route: 048
  8. AMLODIPINE BESILATE [Suspect]
     Active Substance: AMLODIPINE BESYLATE
     Dosage: 2.5 MG, UNK
     Route: 048
  9. SODIUM CHLORIDE. [Suspect]
     Active Substance: SODIUM CHLORIDE
     Dosage: 1000 MG, TID
     Route: 048
  10. TESTOSTERON [Suspect]
     Active Substance: TESTOSTERONE
     Dosage: 250 MG, UNK
     Route: 030

REACTIONS (4)
  - C-reactive protein increased [Unknown]
  - Oedema peripheral [Unknown]
  - Blood albumin decreased [Unknown]
  - Ascites [Unknown]
